FAERS Safety Report 6476207-9 (Version None)
Quarter: 2009Q4

REPORT INFORMATION
  Report Type: 
  Country: None (occurrence: None)
  Receive Date: 20091206
  Receipt Date: 20090115
  Transmission Date: 20100525
  Serious: No
  Sender: FDA-Public Use
  Company Number: US-AMGEN-KDL328723

PATIENT
  Sex: Female
  Weight: 105.8 kg

DRUGS (9)
  1. ENBREL [Suspect]
     Indication: RHEUMATOID ARTHRITIS
     Route: 058
     Dates: start: 20080102, end: 20080509
  2. PLAQUENIL [Concomitant]
  3. METHOTREXATE [Concomitant]
     Route: 058
  4. EFFEXOR [Concomitant]
  5. NEXIUM [Concomitant]
     Route: 048
  6. MELOXICAM [Concomitant]
     Route: 048
  7. SYNTHROID [Concomitant]
     Route: 048
  8. TRAZODONE [Concomitant]
     Route: 048
  9. SINGULAIR [Concomitant]
     Route: 048

REACTIONS (4)
  - CHOLECYSTECTOMY [None]
  - DRUG INEFFECTIVE [None]
  - FUNGAL INFECTION [None]
  - INJECTION SITE PAIN [None]
